FAERS Safety Report 8451341-2 (Version None)
Quarter: 2012Q2

REPORT INFORMATION
  Report Type: 
  Country: None (occurrence: None)
  Receive Date: 20120620
  Receipt Date: 20120613
  Transmission Date: 20120825
  Serious: Yes (Other)
  Sender: FDA-Public Use
  Company Number: US-ROCHE-774681

PATIENT
  Sex: Male
  Weight: 68.1 kg

DRUGS (3)
  1. AMNESTEEM [Suspect]
     Indication: PRODUCT USED FOR UNKNOWN INDICATION
     Route: 065
     Dates: start: 20020101, end: 20030101
  2. ACCUTANE [Suspect]
  3. ACCUTANE [Suspect]
     Indication: ACNE CYSTIC
     Route: 065

REACTIONS (5)
  - INFLAMMATORY BOWEL DISEASE [None]
  - IRRITABLE BOWEL SYNDROME [None]
  - CROHN'S DISEASE [None]
  - ANXIETY [None]
  - EOSINOPHILIC OESOPHAGITIS [None]
